FAERS Safety Report 12082416 (Version 2)
Quarter: 2016Q1

REPORT INFORMATION
  Report Type: Report from Study
  Country: US (occurrence: US)
  Receive Date: 20160217
  Receipt Date: 20160322
  Transmission Date: 20160526
  Serious: No
  Sender: FDA-Public Use
  Company Number: US-AMGEN-USASP2016017622

PATIENT
  Age: 61 Year
  Sex: Male

DRUGS (1)
  1. ENBREL [Suspect]
     Active Substance: ETANERCEPT
     Indication: RHEUMATOID ARTHRITIS
     Dosage: 50 MG/ML, EVERY WEEK
     Route: 058
     Dates: start: 20150909

REACTIONS (4)
  - Sinus congestion [Unknown]
  - Respiratory tract congestion [Recovered/Resolved]
  - Nasal discharge discolouration [Unknown]
  - Cough [Unknown]

NARRATIVE: CASE EVENT DATE: 20160206
